FAERS Safety Report 24323598 (Version 1)
Quarter: 2024Q3

REPORT INFORMATION
  Report Type: Spontaneous
  Country: FR (occurrence: FR)
  Receive Date: 20240916
  Receipt Date: 20240916
  Transmission Date: 20241017
  Serious: Yes (Other)
  Sender: TEVA
  Company Number: None

PATIENT
  Age: 34 Year
  Sex: Male
  Weight: 100 kg

DRUGS (3)
  1. KETOPROFEN [Suspect]
     Active Substance: KETOPROFEN
     Indication: Pelvic fracture
     Dosage: DOSE AND ROUTE OF ADMINISTRATION UNKNOWN
     Route: 065
     Dates: start: 20240715, end: 20240720
  2. IOMERON [Suspect]
     Active Substance: IOMEPROL
     Indication: Computerised tomogram pelvis
     Dosage: TIME INTERVAL: TOTAL
     Route: 042
     Dates: start: 20240713, end: 20240713
  3. AMOXICILLIN [Suspect]
     Active Substance: AMOXICILLIN
     Indication: Erysipelas
     Dosage: AMOXICILLINE PANPHARMA
     Route: 042
     Dates: start: 20240717, end: 20240720

REACTIONS (1)
  - Acute generalised exanthematous pustulosis [Recovered/Resolved]

NARRATIVE: CASE EVENT DATE: 20240720
